FAERS Safety Report 15240413 (Version 1)
Quarter: 2018Q3

REPORT INFORMATION
  Report Type: Spontaneous
  Country: KR (occurrence: KR)
  Receive Date: 20180804
  Receipt Date: 20180804
  Transmission Date: 20181010
  Serious: Yes (Hospitalization)
  Sender: FDA-Public Use
  Company Number: KR-009507513-1808KOR001431

PATIENT
  Sex: Female

DRUGS (25)
  1. KEYTRUDA [Suspect]
     Active Substance: PEMBROLIZUMAB
     Dosage: 2 TIMES/1DAY, 2 VAILS
     Dates: start: 20180402, end: 20180402
  2. KEYTRUDA [Suspect]
     Active Substance: PEMBROLIZUMAB
     Dosage: 2 TIMES/1DAY, 2 VAILS
     Dates: start: 20180510, end: 20180510
  3. NEOPLATIN [Concomitant]
     Active Substance: CISPLATIN
     Dosage: 1 TIME/1DAY
     Dates: start: 20180510, end: 20180510
  4. NEOPLATIN [Concomitant]
     Active Substance: CISPLATIN
     Dosage: 1 TIME/1DAY
     Dates: start: 20180611, end: 20180611
  5. LUTHIONE [Concomitant]
     Dosage: 2 TIMES/1 DAY
     Dates: start: 20180205, end: 20180205
  6. KEYTRUDA [Suspect]
     Active Substance: PEMBROLIZUMAB
     Dosage: 2 TIMES/1DAY, 2 VAILS
     Dates: start: 20180611, end: 20180611
  7. ALIMTA [Concomitant]
     Active Substance: PEMETREXED DISODIUM
     Dosage: 2 TIMES/1DAY
     Dates: start: 20180205, end: 20180205
  8. ALIMTA [Concomitant]
     Active Substance: PEMETREXED DISODIUM
     Dosage: 2 TIMES/1DAY
     Dates: start: 20180402, end: 20180402
  9. ALIMTA [Concomitant]
     Active Substance: PEMETREXED DISODIUM
     Dosage: 2 TIMES/1DAY
     Dates: start: 20180510, end: 20180510
  10. STIMOL [Concomitant]
     Dosage: 16 TIMES/1 DAY
     Dates: start: 20180204, end: 20180211
  11. LUTHIONE [Concomitant]
     Dosage: 2 TIMES/1 DAY
     Dates: start: 20180402, end: 20180402
  12. LUTHIONE [Concomitant]
     Dosage: 2 TIMES/1 DAY
     Dates: start: 20180510, end: 20180510
  13. KEYTRUDA [Suspect]
     Active Substance: PEMBROLIZUMAB
     Dosage: 2 TIMES/1DAY, 2 VAILS
     Dates: start: 20180305, end: 20180305
  14. NEOPLATIN [Concomitant]
     Active Substance: CISPLATIN
     Dosage: 1 TIME/1DAY
     Dates: start: 20180402, end: 20180402
  15. STIMOL [Concomitant]
     Dosage: 17 TIMES/1 DAY
     Dates: start: 20180509, end: 20180514
  16. KEYTRUDA [Suspect]
     Active Substance: PEMBROLIZUMAB
     Dosage: 2 TIMES/1DAY, 2 VAILS
     Dates: start: 20180205, end: 20180205
  17. ALIMTA [Concomitant]
     Active Substance: PEMETREXED DISODIUM
     Dosage: 2 TIMES/1DAY
     Dates: start: 20180305, end: 20180305
  18. ALIMTA [Concomitant]
     Active Substance: PEMETREXED DISODIUM
     Dosage: 2 TIMES/1DAY
     Dates: start: 20180614, end: 20180614
  19. NEOPLATIN [Concomitant]
     Active Substance: CISPLATIN
     Dosage: 1 TIME/1DAY
     Dates: start: 20180205, end: 20180205
  20. NEOPLATIN [Concomitant]
     Active Substance: CISPLATIN
     Dosage: 1 TIME/1DAY
     Dates: start: 20180305, end: 20180305
  21. KEYTRUDA [Suspect]
     Active Substance: PEMBROLIZUMAB
     Dosage: UNK
     Dates: start: 20171221
  22. LUTHIONE [Concomitant]
     Dosage: 2 TIMES/1 DAY
     Dates: start: 20180305, end: 20180305
  23. LUTHIONE [Concomitant]
     Dosage: 2 TIMES/1 DAY
     Dates: start: 20180611, end: 20180611
  24. KEYTRUDA [Suspect]
     Active Substance: PEMBROLIZUMAB
     Indication: NON-SMALL CELL LUNG CANCER
     Dosage: UNK
     Dates: start: 20171129
  25. KEYTRUDA [Suspect]
     Active Substance: PEMBROLIZUMAB
     Dosage: UNK
     Dates: start: 20180115

REACTIONS (10)
  - Hypertension [Unknown]
  - Vomiting [Unknown]
  - Vomiting [Unknown]
  - Hypertension [Unknown]
  - Hypertension [Unknown]
  - Vomiting [Unknown]
  - Vomiting [Unknown]
  - Hypertension [Unknown]
  - Hypertension [Unknown]
  - Vomiting [Unknown]

NARRATIVE: CASE EVENT DATE: 201802
